FAERS Safety Report 7618904-5 (Version None)
Quarter: 2011Q3

REPORT INFORMATION
  Report Type: 
  Country: None (occurrence: None)
  Receive Date: 20110718
  Receipt Date: 20110711
  Transmission Date: 20111222
  Serious: Yes (Hospitalization, Other)
  Sender: FDA-Public Use
  Company Number: DE-PFIZER INC-2011155464

PATIENT
  Age: 58 Year
  Sex: Male

DRUGS (13)
  1. SEROQUEL [Suspect]
     Dosage: 400 - 600 MG/DAILY
     Route: 048
     Dates: start: 20100622, end: 20100627
  2. DIAZEPAM [Concomitant]
     Dosage: 10 MG, DAILY
     Route: 048
     Dates: start: 20100624, end: 20100715
  3. DIAZEPAM [Concomitant]
     Dosage: 2.5 MG, DAILY
     Dates: start: 20100720, end: 20100804
  4. SERTRALINE HYDROCHLORIDE [Suspect]
     Dosage: 50 MG, DAILY
     Route: 048
     Dates: start: 20100527, end: 20100608
  5. SERTRALINE HYDROCHLORIDE [Suspect]
     Dosage: 100 MG, DAILY
     Route: 048
     Dates: start: 20100609, end: 20100707
  6. DIAZEPAM [Concomitant]
     Dosage: 5 MG, DAILY
     Dates: start: 20100716, end: 20100719
  7. SERTRALINE HYDROCHLORIDE [Suspect]
     Dosage: 150 MG, DAILY
     Route: 048
     Dates: start: 20100708, end: 20100712
  8. SEROQUEL [Suspect]
     Dosage: 200 - 600 MG, DAILY
     Route: 048
     Dates: start: 20100522, end: 20100602
  9. SEROQUEL [Suspect]
     Dosage: 800 MG, DAILY
     Route: 048
     Dates: start: 20100628, end: 20100804
  10. SEROQUEL [Suspect]
     Dosage: 300 MG, DAILY
     Route: 048
     Dates: start: 20100602, end: 20100622
  11. AKINETON [Suspect]
     Dosage: 2 MG, DAILY
     Route: 048
     Dates: start: 20100625, end: 20100709
  12. AKINETON [Suspect]
     Dosage: 4 MG, DAILY
     Route: 048
     Dates: start: 20100710
  13. SERTRALINE HYDROCHLORIDE [Suspect]
     Dosage: 200 MG, DAILY
     Route: 048
     Dates: start: 20100713, end: 20100804

REACTIONS (3)
  - DRUG LEVEL INCREASED [None]
  - DELIRIUM [None]
  - DRUG LEVEL DECREASED [None]
